FAERS Safety Report 4591441-0 (Version None)
Quarter: 2005Q1

REPORT INFORMATION
  Report Type: 
  Country: None (occurrence: None)
  Receive Date: 20050225
  Receipt Date: 20040820
  Transmission Date: 20050727
  Serious: Yes (Hospitalization, Disabling)
  Sender: FDA-Public Use
  Company Number: GB-ABBOTT-04P-167-0271211-00

PATIENT
  Sex: Male

DRUGS (2)
  1. EPILIM CHRONO TABLETS [Suspect]
     Indication: EPILEPSY
     Route: 048
     Dates: start: 20040501
  2. DESLORATADINE [Concomitant]
     Indication: RHINITIS
     Route: 065

REACTIONS (5)
  - CONVULSION [None]
  - DRUG INEFFECTIVE [None]
  - DYSGEUSIA [None]
  - EPILEPSY [None]
  - INJURY [None]
